FAERS Safety Report 6155076-0 (Version None)
Quarter: 2009Q2

REPORT INFORMATION
  Report Type: 
  Country: None (occurrence: None)
  Receive Date: 20090410
  Receipt Date: 20090325
  Transmission Date: 20091009
  Serious: Yes (Life-Threatening, Hospitalization)
  Sender: FDA-Public Use
  Company Number: 8044434

PATIENT
  Age: 65 Year
  Sex: Female

DRUGS (5)
  1. THEOPHYLLINE [Suspect]
     Indication: ASTHMA
     Dosage: 200 MG PO
     Route: 048
  2. MONTELUKAST [Concomitant]
  3. BUDESONIDE [Concomitant]
  4. DILTIAZEM [Concomitant]
  5. NICORANDIL [Concomitant]

REACTIONS (18)
  - ACUTE CORONARY SYNDROME [None]
  - ANAPHYLACTIC REACTION [None]
  - ARRHYTHMIA [None]
  - ASTHMA [None]
  - BLINDNESS UNILATERAL [None]
  - CARDIOMYOPATHY [None]
  - ELECTROMECHANICAL DISSOCIATION [None]
  - EOSINOPHILIA [None]
  - FALL [None]
  - GLAUCOMA [None]
  - HYPOTHERMIA [None]
  - MYOCARDIAL INFARCTION [None]
  - OXYGEN SATURATION DECREASED [None]
  - PRINZMETAL ANGINA [None]
  - PULMONARY OEDEMA [None]
  - STRESS CARDIOMYOPATHY [None]
  - VENTRICULAR FIBRILLATION [None]
  - VENTRICULAR FLUTTER [None]
